FAERS Safety Report 4920291-8 (Version None)
Quarter: 2006Q1

REPORT INFORMATION
  Report Type: 
  Country: None (occurrence: None)
  Receive Date: 20060223
  Receipt Date: 20060216
  Transmission Date: 20060701
  Serious: Yes (Hospitalization)
  Sender: FDA-Public Use
  Company Number: FR-GLAXOSMITHKLINE-B0412785A

PATIENT
  Age: 70 Year
  Sex: Male
  Weight: 73 kg

DRUGS (5)
  1. ZOPHREN [Suspect]
     Dosage: 16MG PER DAY
     Route: 042
     Dates: start: 20060203, end: 20060203
  2. DACARBAZINE [Suspect]
     Indication: HODGKIN'S DISEASE
     Dosage: 655MG PER DAY
     Route: 042
     Dates: start: 20060203, end: 20060203
  3. BLEOMYCIN [Suspect]
     Indication: HODGKIN'S DISEASE
     Dosage: 17MG PER DAY
     Route: 042
     Dates: start: 20060203, end: 20060203
  4. DOXORUBICIN HCL [Suspect]
     Indication: HODGKIN'S DISEASE
     Dosage: 44MG PER DAY
     Route: 042
     Dates: start: 20060203, end: 20060203
  5. VINBLASTINE [Suspect]
     Indication: HODGKIN'S DISEASE
     Dosage: 10MG PER DAY
     Route: 042
     Dates: start: 20060203, end: 20060203

REACTIONS (3)
  - DYSPNOEA [None]
  - HYPERTENSION [None]
  - PYREXIA [None]
